FAERS Safety Report 8293174-6 (Version None)
Quarter: 2012Q2

REPORT INFORMATION
  Report Type: 
  Country: None (occurrence: None)
  Receive Date: 20120417
  Receipt Date: 20111104
  Transmission Date: 20120825
  Serious: No
  Sender: FDA-Public Use
  Company Number: US-ASTRAZENECA-2011SE45094

PATIENT
  Age: 46 Year
  Sex: Female

DRUGS (2)
  1. PRILOSEC [Suspect]
     Route: 048
  2. NEXIUM [Suspect]
     Route: 048

REACTIONS (5)
  - SINUS DISORDER [None]
  - DRUG INEFFECTIVE [None]
  - MALAISE [None]
  - HEADACHE [None]
  - MENTAL IMPAIRMENT [None]
